FAERS Safety Report 21827448 (Version 1)
Quarter: 2023Q1

REPORT INFORMATION
  Report Type: Spontaneous
  Country: US (occurrence: US)
  Receive Date: 20230106
  Receipt Date: 20230106
  Transmission Date: 20230417
  Serious: No
  Sender: FDA-Public Use
  Company Number: US-COOPERSURGICAL, INC.-US-2022CPS001175

PATIENT
  Sex: Female
  Weight: 81.633 kg

DRUGS (1)
  1. PARAGARD T 380A [Suspect]
     Active Substance: COPPER
     Indication: Contraception
     Dosage: UNK
     Route: 015
     Dates: start: 20100422

REACTIONS (12)
  - Headache [Unknown]
  - Complication associated with device [Not Recovered/Not Resolved]
  - Fatigue [Unknown]
  - Heavy menstrual bleeding [Not Recovered/Not Resolved]
  - Hypomenorrhoea [Unknown]
  - Intermenstrual bleeding [Unknown]
  - Dysmenorrhoea [Unknown]
  - Pelvic pain [Recovered/Resolved]
  - Back pain [Unknown]
  - Abdominal distension [Unknown]
  - Off label use [Unknown]
  - Intentional device use issue [Unknown]

NARRATIVE: CASE EVENT DATE: 20100101
